FAERS Safety Report 9560571 (Version 1)
Quarter: 2013Q3

REPORT INFORMATION
  Report Type: Spontaneous
  Country: US (occurrence: US)
  Receive Date: 20130927
  Receipt Date: 20130927
  Transmission Date: 20140515
  Serious: No
  Sender: FDA-Public Use
  Company Number: US-BIOGENIDEC-2013BI052298

PATIENT
  Age: 54 Year
  Sex: Female

DRUGS (1)
  1. TECFIDERA [Suspect]
     Indication: MULTIPLE SCLEROSIS
     Route: 048

REACTIONS (9)
  - Gastric disorder [Unknown]
  - Sleep disorder [Not Recovered/Not Resolved]
  - Feeling cold [Unknown]
  - Hyperaesthesia [Not Recovered/Not Resolved]
  - Bladder disorder [Unknown]
  - Burning sensation [Unknown]
  - Temperature intolerance [Unknown]
  - Hot flush [Unknown]
  - Flushing [Not Recovered/Not Resolved]
